FAERS Safety Report 6676314-1 (Version None)
Quarter: 2010Q2

REPORT INFORMATION
  Report Type: 
  Country: None (occurrence: None)
  Receive Date: 20100412
  Receipt Date: 20100331
  Transmission Date: 20101027
  Serious: Yes (Life-Threatening)
  Sender: FDA-Public Use
  Company Number: CN-PFIZER INC-2010042156

PATIENT
  Sex: Male

DRUGS (2)
  1. CEFOPERAZONE SODIUM, SULBACTAM SODIUM [Suspect]
     Indication: SINUSITIS
     Dosage: UNK %, UNK
     Route: 042
  2. ALCOHOL [Suspect]

REACTIONS (1)
  - ALCOHOL INTOLERANCE [None]
